FAERS Safety Report 24609488 (Version 2)
Quarter: 2024Q4

REPORT INFORMATION
  Report Type: Spontaneous
  Country: IT (occurrence: IT)
  Receive Date: 20241112
  Receipt Date: 20241114
  Transmission Date: 20250114
  Serious: Yes (Death, Other)
  Sender: BIOVITRUM
  Company Number: IT-BIOVITRUM-2024-IT-014532

PATIENT
  Sex: Female

DRUGS (1)
  1. EMAPALUMAB [Suspect]
     Active Substance: EMAPALUMAB
     Indication: Product used for unknown indication
     Dosage: FIRST DOSE
     Dates: start: 20241109

REACTIONS (1)
  - Multiple organ dysfunction syndrome [Fatal]
